FAERS Safety Report 25735470 (Version 1)
Quarter: 2025Q3

REPORT INFORMATION
  Report Type: Spontaneous
  Country: US (occurrence: None)
  Receive Date: 20250828
  Receipt Date: 20250828
  Transmission Date: 20251021
  Serious: Yes (Hospitalization)
  Sender: FDA-CTU
  Company Number: None

PATIENT
  Sex: Male

DRUGS (14)
  1. LENALIDOMIDE [Suspect]
     Active Substance: LENALIDOMIDE
     Indication: Plasma cell myeloma
     Route: 048
     Dates: start: 20250812
  2. DARATUMUMAB [Suspect]
     Active Substance: DARATUMUMAB
  3. VELCADE [Suspect]
     Active Substance: BORTEZOMIB
  4. DEXAMETHASONE [Suspect]
     Active Substance: DEXAMETHASONE
  5. ACETAMIN TAB 500MG [Concomitant]
  6. ACYCLOVIR [Concomitant]
     Active Substance: ACYCLOVIR
  7. ALLOPURINOL TAB 300MG [Concomitant]
  8. AMLODIPINE [Concomitant]
     Active Substance: AMLODIPINE BESYLATE
  9. CALCIUM GARB TAB 600MG [Concomitant]
  10. DARZALEX SOL 100/SML [Concomitant]
  11. DEXAMETHASONE [Concomitant]
     Active Substance: DEXAMETHASONE
  12. INDAPAMIDE TAB 2.5MG [Concomitant]
  13. KP VITAMIN [Concomitant]
  14. PANTOPRAZOLE TAB 40MG [Concomitant]

REACTIONS (2)
  - Pyrexia [None]
  - Hypotension [None]
